FAERS Safety Report 10192267 (Version 1)
Quarter: 2014Q2

REPORT INFORMATION
  Report Type: Spontaneous
  Country: CO (occurrence: CO)
  Receive Date: 20140523
  Receipt Date: 20140523
  Transmission Date: 20141212
  Serious: Yes (Death)
  Sender: FDA-Public Use
  Company Number: CO-PFIZER INC-2014140794

PATIENT
  Age: 8 Year
  Sex: Male

DRUGS (1)
  1. GENOTROPIN [Suspect]
     Indication: FAILURE TO THRIVE
     Dosage: UNK
     Route: 058
     Dates: start: 2011, end: 201310

REACTIONS (1)
  - Congenital aplastic anaemia [Fatal]
